FAERS Safety Report 18040039 (Version 1)
Quarter: 2020Q3

REPORT INFORMATION
  Report Type: Report from Study
  Country: CO (occurrence: CO)
  Receive Date: 20200717
  Receipt Date: 20200717
  Transmission Date: 20201103
  Serious: Yes (Other)
  Sender: FDA-Public Use
  Company Number: NVSC2020CO201138

PATIENT

DRUGS (1)
  1. ENTRESTO [Suspect]
     Active Substance: SACUBITRIL\VALSARTAN
     Indication: PRODUCT USED FOR UNKNOWN INDICATION
     Dosage: 50 MG (SACUBITRIL VALSARTAN 24.3+25.7MG)
     Route: 065
     Dates: end: 20200321

REACTIONS (2)
  - Diarrhoea haemorrhagic [Unknown]
  - Irritable bowel syndrome [Unknown]
